FAERS Safety Report 5230770-4 (Version None)
Quarter: 2007Q1

REPORT INFORMATION
  Report Type: 
  Country: None (occurrence: None)
  Receive Date: 20070202
  Receipt Date: 20061205
  Transmission Date: 20070707
  Serious: Yes (Hospitalization)
  Sender: FDA-Public Use
  Company Number: 224160

PATIENT
  Age: 55 Year
  Sex: Male
  Weight: 70.6 kg

DRUGS (6)
  1. AVASTIN [Suspect]
     Indication: COLORECTAL CANCER METASTATIC
     Dosage: 5 MG/KG, Q2W, INTRAVENOUS
     Route: 042
     Dates: start: 20051024, end: 20060317
  2. IRINOTECAN HCL [Suspect]
     Indication: COLORECTAL CANCER METASTATIC
     Dosage: SEE IMAGE
     Route: 042
     Dates: start: 20051024, end: 20060317
  3. FLUOROURACIL [Suspect]
     Indication: COLORECTAL CANCER METASTATIC
     Dosage: SEE IMAGE
     Dates: start: 20051024, end: 20060317
  4. LEUCOVORIN CALCIUM [Suspect]
     Indication: COLORECTAL CANCER METASTATIC
     Dosage: SEE IMAGE
     Dates: start: 20051024, end: 20060317
  5. LOSEC (OMEPRAZOLE [Concomitant]
  6. AMLODIPINE BESYLATE [Concomitant]

REACTIONS (6)
  - DIARRHOEA [None]
  - ENDOCARDITIS [None]
  - HAEMOGLOBIN DECREASED [None]
  - METASTASES TO LIVER [None]
  - PNEUMONIA [None]
  - SPLENOMEGALY [None]
